FAERS Safety Report 16915200 (Version 1)
Quarter: 2019Q4

REPORT INFORMATION
  Report Type: Spontaneous
  Country: US (occurrence: US)
  Receive Date: 20191011
  Receipt Date: 20191011
  Transmission Date: 20200122
  Serious: Yes (Hospitalization, Other)
  Sender: FDA-Public Use
  Company Number: None

PATIENT
  Age: 54 Year
  Sex: Male
  Weight: 88.5 kg

DRUGS (1)
  1. DUPILUMAB [Suspect]
     Active Substance: DUPILUMAB
     Indication: ECZEMA EYELIDS
     Dosage: ?          OTHER FREQUENCY:EVERY 2 WEEKS;?
     Route: 058
     Dates: start: 20190902

REACTIONS (6)
  - Diarrhoea [None]
  - Gait disturbance [None]
  - Cough [None]
  - Blood uric acid increased [None]
  - Decreased appetite [None]
  - Pain [None]

NARRATIVE: CASE EVENT DATE: 20191011
